FAERS Safety Report 8159251-5 (Version None)
Quarter: 2012Q1

REPORT INFORMATION
  Report Type: 
  Country: None (occurrence: None)
  Receive Date: 20120223
  Receipt Date: 20120209
  Transmission Date: 20120608
  Serious: Yes (Hospitalization)
  Sender: FDA-Public Use
  Company Number: ES-CELGENEUS-144-21660-12011459

PATIENT
  Sex: Male

DRUGS (6)
  1. ATENOLOL [Concomitant]
     Indication: HYPERTENSION
     Route: 048
  2. ABRAXANE [Suspect]
     Route: 041
     Dates: start: 20111216
  3. GEMCITABINE [Suspect]
     Route: 041
     Dates: start: 20111216
  4. LOSARTAN POTASSIUM [Concomitant]
     Indication: HYPERTENSION
     Route: 048
  5. ATORVASTATIN [Concomitant]
     Route: 048
  6. MOXON [Concomitant]
     Indication: HYPERTENSION
     Route: 048

REACTIONS (1)
  - CHOLANGITIS [None]
